FAERS Safety Report 11086459 (Version 1)
Quarter: 2015Q2

REPORT INFORMATION
  Report Type: Spontaneous
  Country: US (occurrence: None)
  Receive Date: 20150501
  Receipt Date: 20150501
  Transmission Date: 20150821
  Serious: Yes (Death)
  Sender: FDA-Public Use
  Company Number: None

PATIENT
  Age: 45 Year
  Sex: Female

DRUGS (1)
  1. CIMZIA [Suspect]
     Active Substance: CERTOLIZUMAB PEGOL
     Indication: CROHN^S DISEASE
     Dosage: 400MG Q 4 WEEKS SUBCUTANEOUSLY
     Route: 058
     Dates: start: 20140718, end: 20150423

REACTIONS (1)
  - Death [None]

NARRATIVE: CASE EVENT DATE: 20150423
